FAERS Safety Report 14958531 (Version 1)
Quarter: 2018Q2

REPORT INFORMATION
  Report Type: Spontaneous
  Country: US (occurrence: US)
  Receive Date: 20180509
  Receipt Date: 20180509
  Transmission Date: 20180711
  Serious: Yes (Life-Threatening, Hospitalization, Disabling)
  Sender: FDA-Public Use
  Company Number: None

PATIENT
  Age: 71 Year
  Sex: Female
  Weight: 108 kg

DRUGS (45)
  1. LEVOTHYROXIN [Concomitant]
     Active Substance: LEVOTHYROXINE
  2. IRON [Concomitant]
     Active Substance: IRON
  3. CINNAMON. [Concomitant]
     Active Substance: CINNAMON
  4. TYLENOL [Concomitant]
     Active Substance: ACETAMINOPHEN
  5. ZETIA [Concomitant]
     Active Substance: EZETIMIBE
  6. LEVEMIR [Concomitant]
     Active Substance: INSULIN DETEMIR
  7. CO-Q ENZYME 10 [Concomitant]
  8. ACIDOPHILUS [Concomitant]
     Active Substance: LACTOBACILLUS ACIDOPHILUS
  9. FISH OIL [Concomitant]
     Active Substance: FISH OIL
  10. DESONIDE. [Concomitant]
     Active Substance: DESONIDE
  11. ICY-HOT [Concomitant]
  12. ALLOPURINOL. [Concomitant]
     Active Substance: ALLOPURINOL
  13. MIRTAZAPINE. [Concomitant]
     Active Substance: MIRTAZAPINE
  14. NIACINAMIDE [Concomitant]
     Active Substance: NIACINAMIDE
  15. CLOBETASOL PROPIONATE. [Concomitant]
     Active Substance: CLOBETASOL PROPIONATE
  16. GLUCOSAMINE [Concomitant]
     Active Substance: GLUCOSAMINE
  17. VITAMIN D [Concomitant]
     Active Substance: CHOLECALCIFEROL
  18. LOW DOSE ASPIRIN [Concomitant]
     Active Substance: ASPIRIN
  19. WANNA PLUS [Concomitant]
  20. KETOCONAZOLE SHAMPOO [Concomitant]
     Active Substance: KETOCONAZOLE
  21. BUMETANIDE. [Concomitant]
     Active Substance: BUMETANIDE
  22. POTASSIUM CHLORIDE. [Concomitant]
     Active Substance: POTASSIUM CHLORIDE
  23. BACLOFEN. [Concomitant]
     Active Substance: BACLOFEN
  24. CRANBERRY. [Concomitant]
     Active Substance: CRANBERRY
  25. FLUOCINONIDE. [Concomitant]
     Active Substance: FLUOCINONIDE
  26. VOLTAREN [Concomitant]
     Active Substance: DICLOFENAC SODIUM
  27. HUMIRA [Suspect]
     Active Substance: ADALIMUMAB
     Indication: GRANULOMA ANNULARE
     Dosage: ?          QUANTITY:1 INJECTION(S);OTHER FREQUENCY:EVERY 2 WEEKS;?
     Route: 030
     Dates: start: 20170810, end: 20171122
  28. OMEPRAZOLE. [Concomitant]
     Active Substance: OMEPRAZOLE
  29. NOVOLOG [Concomitant]
     Active Substance: INSULIN ASPART
  30. HYDROCODONE [Concomitant]
     Active Substance: HYDROCODONE
  31. HALOBETASOL PROPIONATE. [Concomitant]
     Active Substance: HALOBETASOL PROPIONATE
  32. HUMIRA [Suspect]
     Active Substance: ADALIMUMAB
     Indication: PSORIATIC ARTHROPATHY
     Dosage: ?          QUANTITY:1 INJECTION(S);OTHER FREQUENCY:EVERY 2 WEEKS;?
     Route: 030
     Dates: start: 20170810, end: 20171122
  33. GLIMEPIRIDE. [Concomitant]
     Active Substance: GLIMEPIRIDE
  34. AMIODARONE [Concomitant]
     Active Substance: AMIODARONE
  35. WARFARIN [Concomitant]
     Active Substance: WARFARIN
  36. CARVEDILOL. [Concomitant]
     Active Substance: CARVEDILOL
  37. DULOXETINE. [Concomitant]
     Active Substance: DULOXETINE
  38. CALCIUM CITRATE [Concomitant]
     Active Substance: CALCIUM CITRATE
  39. PURELAX [Concomitant]
     Active Substance: POLYETHYLENE GLYCOL 3350
  40. PREDNISONE. [Concomitant]
     Active Substance: PREDNISONE
  41. LOSARTAN POTASSIUM. [Concomitant]
     Active Substance: LOSARTAN POTASSIUM
  42. STELARA [Concomitant]
     Active Substance: USTEKINUMAB
  43. COMPLETE MULTIVITAMIN [Concomitant]
     Active Substance: VITAMINS
  44. MAGNESIUM OXIDE. [Concomitant]
     Active Substance: MAGNESIUM OXIDE
  45. BETAMETHASONE CREAM [Concomitant]

REACTIONS (7)
  - Pneumonia legionella [None]
  - Depressed level of consciousness [None]
  - Impaired quality of life [None]
  - Disease recurrence [None]
  - Urinary tract infection [None]
  - Fatigue [None]
  - Wheelchair user [None]

NARRATIVE: CASE EVENT DATE: 20171123
